FAERS Safety Report 16274614 (Version 2)
Quarter: 2019Q2

REPORT INFORMATION
  Report Type: Report from Study
  Country: US (occurrence: US)
  Receive Date: 20190506
  Receipt Date: 20190510
  Transmission Date: 20190711
  Serious: Yes (Hospitalization)
  Sender: FDA-Public Use
  Company Number: US-ROCHE-2310265

PATIENT
  Age: 59 Year
  Sex: Female

DRUGS (16)
  1. OCREVUS [Suspect]
     Active Substance: OCRELIZUMAB
     Indication: PRIMARY PROGRESSIVE MULTIPLE SCLEROSIS
     Dosage: 29/OCT/2018, 15/APR/2019, 24/APR/2019
     Route: 065
     Dates: start: 20181015
  2. ROPINIROLE HYDROCHLORIDE. [Concomitant]
     Active Substance: ROPINIROLE HYDROCHLORIDE
     Route: 048
  3. ISOSORBIDE DINITRATE. [Concomitant]
     Active Substance: ISOSORBIDE DINITRATE
     Route: 048
  4. ATORVASTATIN CALCIUM. [Concomitant]
     Active Substance: ATORVASTATIN CALCIUM
     Route: 048
  5. RANITIDINE HCL [Concomitant]
     Active Substance: RANITIDINE HYDROCHLORIDE
     Route: 048
  6. PROMETHAZINE HYDROCHLORIDE. [Concomitant]
     Active Substance: PROMETHAZINE HYDROCHLORIDE
     Route: 065
  7. ASPIRIN [ACETYLSALICYLIC ACID] [Concomitant]
     Active Substance: ASPIRIN
     Route: 048
  8. AMBIEN [Concomitant]
     Active Substance: ZOLPIDEM TARTRATE
  9. ZOLPIDEM TARTRATE. [Concomitant]
     Active Substance: ZOLPIDEM TARTRATE
     Route: 048
  10. FUROSEMIDE. [Concomitant]
     Active Substance: FUROSEMIDE
     Route: 048
  11. RANEXA [Concomitant]
     Active Substance: RANOLAZINE
     Route: 048
  12. METOPROLOLTARTRAT [Concomitant]
     Route: 048
  13. PLAVIX [Concomitant]
     Active Substance: CLOPIDOGREL BISULFATE
     Route: 048
  14. POTASSIUM [Concomitant]
     Active Substance: POTASSIUM
  15. DULOXETINE HCL [Concomitant]
     Active Substance: DULOXETINE HYDROCHLORIDE
     Route: 048
  16. MOVANTIK [Concomitant]
     Active Substance: NALOXEGOL OXALATE
     Route: 048

REACTIONS (3)
  - Pneumonia [Recovered/Resolved]
  - Balance disorder [Recovered/Resolved]
  - Tremor [Recovered/Resolved]

NARRATIVE: CASE EVENT DATE: 20190406
